FAERS Safety Report 8770716 (Version 2)
Quarter: 2014Q1

REPORT INFORMATION
  Report Type: Report from Study
  Country: DE (occurrence: DE)
  Receive Date: 20120907
  Receipt Date: 20140220
  Transmission Date: 20141002
  Serious: Yes (Hospitalization)
  Sender: FDA-Public Use
  Company Number: DE-ROCHE-1114512

PATIENT
  Sex: Female

DRUGS (6)
  1. RITUXIMAB [Suspect]
     Indication: RHEUMATOID ARTHRITIS
     Route: 065
     Dates: start: 20110120
  2. RITUXIMAB [Suspect]
     Route: 065
     Dates: start: 20110728
  3. RITUXIMAB [Suspect]
     Route: 065
     Dates: start: 20120127
  4. RITUXIMAB [Suspect]
     Route: 065
     Dates: start: 20130913
  5. AZATHIOPRIN [Suspect]
     Indication: RHEUMATOID ARTHRITIS
     Route: 065
     Dates: start: 200503
  6. PREDNISOLON [Concomitant]
     Indication: RHEUMATOID ARTHRITIS
     Route: 065
     Dates: start: 201107

REACTIONS (5)
  - Synovitis [Recovering/Resolving]
  - Meniscus injury [Recovering/Resolving]
  - Osteoarthritis [Recovering/Resolving]
  - Chondromalacia [Recovering/Resolving]
  - Knee arthroplasty [Recovered/Resolved]
